FAERS Safety Report 5350832-0 (Version None)
Quarter: 2007Q2

REPORT INFORMATION
  Report Type: 
  Country: None (occurrence: None)
  Receive Date: 20070608
  Receipt Date: 20070601
  Transmission Date: 20071010
  Serious: Yes (Hospitalization, Other)
  Sender: FDA-Public Use
  Company Number: AU-AVENTIS-200714299GDDC

PATIENT
  Age: 63 Year

DRUGS (1)
  1. LANTUS [Suspect]
     Route: 058
     Dates: start: 20061201, end: 20070514

REACTIONS (1)
  - HEPATITIS CHOLESTATIC [None]
